FAERS Safety Report 13160050 (Version 2)
Quarter: 2017Q3

REPORT INFORMATION
  Report Type: Spontaneous
  Country: FR (occurrence: FR)
  Receive Date: 20170127
  Receipt Date: 20170705
  Transmission Date: 20171127
  Serious: Yes (Hospitalization, Other)
  Sender: FDA-Public Use
  Company Number: PHHY2017FR008561

PATIENT
  Age: 32 Year
  Sex: Male

DRUGS (3)
  1. CANNABIS [Concomitant]
     Active Substance: CANNABIS SATIVA SUBSP. INDICA TOP
     Indication: PRODUCT USED FOR UNKNOWN INDICATION
     Route: 065
  2. RITALIN SR [Suspect]
     Active Substance: METHYLPHENIDATE HYDROCHLORIDE
     Indication: PRODUCT USED FOR UNKNOWN INDICATION
     Dosage: 560 MG (CRUSHED AND DILUTED IN NORMAL SALINE IN DOSES OF 40 MG SEVERAL TIMES PER DAY)
     Route: 042
  3. COCAINE [Concomitant]
     Active Substance: COCAINE
     Indication: PRODUCT USED FOR UNKNOWN INDICATION
     Route: 065

REACTIONS (10)
  - Psychomotor hyperactivity [Recovered/Resolved]
  - Weight decreased [Unknown]
  - Intentional product misuse [Unknown]
  - Speech disorder [Recovered/Resolved]
  - Drug dependence [Unknown]
  - Restlessness [Recovered/Resolved]
  - Mental disorder [Recovered/Resolved]
  - Impulsive behaviour [Unknown]
  - Disturbance in attention [Recovered/Resolved]
  - Psychomotor retardation [Recovered/Resolved]
